FAERS Safety Report 4441559-8 (Version None)
Quarter: 2004Q3

REPORT INFORMATION
  Report Type: 
  Country: None (occurrence: None)
  Receive Date: 20040728
  Receipt Date: 20040506
  Transmission Date: 20050211
  Serious: No
  Sender: FDA-Public Use
  Company Number: USA040566879

PATIENT
  Age: 12 Year
  Sex: Male

DRUGS (2)
  1. STRATTERA [Suspect]
     Dosage: 40 MG DAY
     Dates: start: 20040428
  2. ATENOLOL [Concomitant]

REACTIONS (3)
  - DECREASED APPETITE [None]
  - NECK PAIN [None]
  - SOMNOLENCE [None]
